FAERS Safety Report 16393581 (Version 1)
Quarter: 2019Q2

REPORT INFORMATION
  Report Type: Spontaneous
  Country: ES (occurrence: ES)
  Receive Date: 20190605
  Receipt Date: 20190605
  Transmission Date: 20190711
  Serious: Yes (Life-Threatening, Hospitalization)
  Sender: FDA-Public Use
  Company Number: ES-PFIZER INC-2019235658

PATIENT
  Age: 54 Year
  Sex: Male

DRUGS (4)
  1. DOXORUBICIN HCL [Suspect]
     Active Substance: DOXORUBICIN HYDROCHLORIDE
     Indication: HODGKIN^S DISEASE
     Dosage: UNK UNK, AS NEEDED (AS NEEDED EVERY 2 WEEKS DURING 2 MONTHS)
     Route: 042
     Dates: start: 20080530, end: 20080730
  2. DACARBAZINE. [Interacting]
     Active Substance: DACARBAZINE
     Indication: HODGKIN^S DISEASE
     Dosage: UNK UNK, AS NEEDED (AS NEEDED, EVERY 2 WEEKS DURING 2 MONTHS)
     Route: 042
     Dates: start: 20080530, end: 20080730
  3. VINBLASTINE [Interacting]
     Active Substance: VINBLASTINE
     Indication: HODGKIN^S DISEASE
     Dosage: UNK UNK, AS NEEDED (AS NEEDED, EVERY 2 WEEKS DURING 2 MONTHS)
     Route: 042
     Dates: start: 20080530, end: 20080730
  4. BLEOMYCIN [Interacting]
     Active Substance: BLEOMYCIN SULFATE
     Indication: HODGKIN^S DISEASE
     Dosage: UNK UNK, AS NEEDED (EVERY 2 WEEKS 2 MONTHS)
     Route: 042
     Dates: start: 20080530, end: 20080730

REACTIONS (3)
  - Drug interaction [Unknown]
  - Second primary malignancy [Not Recovered/Not Resolved]
  - Acute myeloid leukaemia [Not Recovered/Not Resolved]

NARRATIVE: CASE EVENT DATE: 20180326
